FAERS Safety Report 6339126-4 (Version None)
Quarter: 2009Q3

REPORT INFORMATION
  Report Type: 
  Country: None (occurrence: None)
  Receive Date: 20090903
  Receipt Date: 20090831
  Transmission Date: 20100115
  Serious: Yes (Life-Threatening, Hospitalization)
  Sender: FDA-Public Use
  Company Number: AU-BRISTOL-MYERS SQUIBB COMPANY-14761159

PATIENT
  Age: 56 Year
  Sex: Male
  Weight: 137 kg

DRUGS (33)
  1. ETOPOSIDE [Suspect]
     Indication: ACUTE MYELOID LEUKAEMIA
     Dosage: 11.3 MG/ML SOLN
     Route: 042
     Dates: start: 20090518, end: 20090524
  2. ZAVEDOS [Suspect]
     Indication: ACUTE MYELOID LEUKAEMIA
     Dosage: 10MG/10ML SOLN
     Route: 042
     Dates: start: 20090518, end: 20090520
  3. CYTARABINE [Suspect]
     Indication: ACUTE MYELOID LEUKAEMIA
     Dosage: SOLN FOR INJECTION 2000MG/20ML SOLN ON DAYS 0,2,3,5+7
     Route: 042
     Dates: start: 20090518, end: 20090524
  4. NEULASTA [Suspect]
     Indication: COLONY STIMULATING FACTOR THERAPY
     Dosage: SOLN FOR INJ
     Route: 058
     Dates: start: 20090525, end: 20090525
  5. KEPIVANCE [Suspect]
     Dosage: 5MG/1ML SOLN THERAPY DATE:15MAY09-17MAY09, 25MAY09-27MAY09
     Route: 042
     Dates: start: 20090515, end: 20090527
  6. BLINDED: PLACEBO [Suspect]
     Dosage: THERAPY DATE:15MAY09-17MAY09, 25MAY09-27MAY09
     Route: 042
     Dates: start: 20090515, end: 20090527
  7. FORTAMET [Concomitant]
     Dates: end: 20090528
  8. NIDEM [Concomitant]
     Dates: end: 20090528
  9. GENTEAL [Concomitant]
     Dates: end: 20090528
  10. SYSTANE [Concomitant]
     Dates: end: 20090529
  11. COVERSYL [Concomitant]
     Dosage: TAB
     Dates: start: 20090512, end: 20090528
  12. ZYLOPRIM [Concomitant]
     Dosage: TAB
     Dates: start: 20090512, end: 20090529
  13. NILSTAT [Concomitant]
     Dosage: TAB
     Dates: start: 20090512
  14. AUGMENTIN [Concomitant]
     Dosage: TAB
     Dates: start: 20090516, end: 20090527
  15. NOVORAPID [Concomitant]
     Dates: start: 20090522, end: 20090529
  16. PARACETAMOL TABS [Concomitant]
     Dates: start: 20090526
  17. NOXAFIL [Concomitant]
     Dates: start: 20090515, end: 20090528
  18. MAXIDEX [Concomitant]
     Dates: start: 20090519, end: 20090528
  19. MAXOLON [Concomitant]
     Dates: start: 20090526, end: 20090529
  20. LIPITOR [Concomitant]
     Dates: start: 20090522, end: 20090528
  21. ENDONE [Concomitant]
     Dosage: TAB
     Dates: start: 20090527, end: 20090528
  22. SOMAC [Concomitant]
     Dates: start: 20090526
  23. GENTAMICIN [Concomitant]
     Dates: start: 20090526, end: 20090603
  24. MAXIPIME [Concomitant]
     Dates: start: 20090526, end: 20090528
  25. AMBISOME [Concomitant]
     Dates: start: 20090531, end: 20090603
  26. ONDANSETRON [Concomitant]
     Dates: start: 20090529, end: 20090603
  27. LASIX [Concomitant]
     Dates: start: 20090604, end: 20090604
  28. CODEINE PHOSPHATE [Concomitant]
     Dosage: TAB
     Dates: start: 20090527
  29. FLAGYL [Concomitant]
     Dates: start: 20090602
  30. TIMENTIN [Concomitant]
     Dates: start: 20090528
  31. VANCOMYCIN [Concomitant]
  32. ACTRAPID [Concomitant]
     Dates: start: 20090522, end: 20090527
  33. EZETROL [Concomitant]
     Dosage: TAB
     Dates: start: 20090522, end: 20090528

REACTIONS (1)
  - RENAL FAILURE [None]
